FAERS Safety Report 5196632-6 (Version None)
Quarter: 2006Q4

REPORT INFORMATION
  Report Type: 
  Country: None (occurrence: None)
  Receive Date: 20061227
  Receipt Date: 20061219
  Transmission Date: 20070319
  Serious: Yes (Other)
  Sender: FDA-Public Use
  Company Number: 2006300587

PATIENT
  Age: 73 Year
  Sex: Male
  Weight: 78.9 kg

DRUGS (2)
  1. MINOXIDIL [Suspect]
     Indication: ALOPECIA
     Dosage: 1 ML TWICE DAILY (1 ML), TOPICAL
     Route: 061
     Dates: start: 20060901, end: 20061216
  2. GARLIC (GARLIC) [Concomitant]

REACTIONS (1)
  - BLOOD PRESSURE INCREASED [None]
